FAERS Safety Report 23219983 (Version 2)
Quarter: 2023Q4

REPORT INFORMATION
  Report Type: Report from Study
  Country: ES (occurrence: None)
  Receive Date: 20231122
  Receipt Date: 20231123
  Transmission Date: 20240110
  Serious: Yes (Hospitalization)
  Sender: FDA-Public Use
  Company Number: ES-ROCHE-3455099

PATIENT
  Age: 64 Year
  Sex: Male

DRUGS (48)
  1. ATEZOLIZUMAB [Suspect]
     Active Substance: ATEZOLIZUMAB
     Indication: Hepatocellular carcinoma
     Dosage: DOSE LAST STUDY DRUG ADMIN PRIOR SAE IS 1200 MG 24/AUG/2023
     Route: 041
     Dates: start: 20211007
  2. BEVACIZUMAB [Suspect]
     Active Substance: BEVACIZUMAB
     Indication: Hepatocellular carcinoma
     Dosage: DOSE LAST STUDY DRUG ADMIN PRIOR SAE IS 1300 MG 24/AUG/2023
     Route: 042
  3. CANDESARTAN CILEXETIL [Concomitant]
     Active Substance: CANDESARTAN CILEXETIL
     Route: 048
     Dates: start: 20130321, end: 20211230
  4. DAPAGLIFLOZIN [Concomitant]
     Active Substance: DAPAGLIFLOZIN
     Indication: Diabetes mellitus
     Route: 048
     Dates: start: 20170829
  5. OMEPRAZOLE [Concomitant]
     Active Substance: OMEPRAZOLE
     Indication: Prophylaxis
     Route: 048
     Dates: start: 20180817
  6. FLUTICASONE FUROATE [Concomitant]
     Active Substance: FLUTICASONE FUROATE
     Indication: Chronic obstructive pulmonary disease
     Dates: start: 20210607
  7. FERROUS SULFATE [Concomitant]
     Active Substance: FERROUS SULFATE
     Indication: Iron deficiency anaemia
     Route: 048
     Dates: start: 20211004, end: 20220206
  8. METAMIZOLE [Concomitant]
     Active Substance: METAMIZOLE
     Indication: Myalgia
     Route: 048
     Dates: start: 20211008, end: 202111
  9. ACETAMINOPHEN [Concomitant]
     Active Substance: ACETAMINOPHEN
     Indication: Headache
     Route: 048
     Dates: start: 20211008, end: 202111
  10. ACETAMINOPHEN [Concomitant]
     Active Substance: ACETAMINOPHEN
     Indication: Prostatitis
     Route: 042
     Dates: start: 20230918, end: 20230918
  11. METFORMIN [Concomitant]
     Active Substance: METFORMIN HYDROCHLORIDE
     Indication: Diabetes mellitus
     Route: 048
     Dates: start: 20170829
  12. ESCITALOPRAM [Concomitant]
     Active Substance: ESCITALOPRAM OXALATE
     Indication: Depressed mood
     Route: 048
     Dates: start: 20220303, end: 20220511
  13. ESCITALOPRAM [Concomitant]
     Active Substance: ESCITALOPRAM OXALATE
     Route: 048
     Dates: start: 20220929
  14. NYSTATIN [Concomitant]
     Active Substance: NYSTATIN
     Indication: Dysphonia
     Route: 048
     Dates: start: 20220412, end: 20220425
  15. HYDROCHLOROTHIAZIDE [Concomitant]
     Active Substance: HYDROCHLOROTHIAZIDE
     Indication: Hypertension
     Route: 048
     Dates: start: 20211230
  16. AMLODIPINE [Concomitant]
     Active Substance: AMLODIPINE BESYLATE
     Indication: Hypertension
     Route: 048
     Dates: start: 20220530, end: 20231031
  17. METAMIZOLE [Concomitant]
     Active Substance: METAMIZOLE
     Indication: Pain
     Route: 048
     Dates: start: 20220616
  18. METAMIZOLE [Concomitant]
     Active Substance: METAMIZOLE
     Indication: Prostatitis
     Route: 042
     Dates: start: 20230729, end: 20230801
  19. VILANTEROL [Concomitant]
     Active Substance: VILANTEROL
     Indication: Chronic obstructive pulmonary disease
     Dates: start: 20210607
  20. TADALAFIL [Concomitant]
     Active Substance: TADALAFIL
     Indication: Erectile dysfunction
     Route: 048
     Dates: start: 20221004, end: 2022
  21. BUTYLSCOPOLAMINE BROMIDE [Concomitant]
     Active Substance: BUTYLSCOPOLAMINE BROMIDE
     Indication: Abdominal pain
     Route: 048
     Dates: start: 20221006
  22. AMOXICILLIN [Concomitant]
     Active Substance: AMOXICILLIN
     Route: 048
     Dates: start: 20220802, end: 20220811
  23. CLAVULANIC ACID [Concomitant]
     Active Substance: CLAVULANIC ACID
     Route: 048
     Dates: start: 20220802, end: 20220811
  24. FLUTICASONE FUROATE [Concomitant]
     Active Substance: FLUTICASONE FUROATE
     Dates: start: 20220802
  25. AZITHROMYCIN DIHYDRATE [Concomitant]
     Active Substance: AZITHROMYCIN DIHYDRATE
     Indication: Rhinorrhoea
     Route: 048
     Dates: start: 20221004, end: 20221006
  26. LEVOFLOXACIN [Concomitant]
     Active Substance: LEVOFLOXACIN
     Indication: Respiratory tract infection
     Route: 048
     Dates: start: 20221231, end: 20230106
  27. CLOPERASTINE FENDIZOATE [Concomitant]
     Active Substance: CLOPERASTINE FENDIZOATE
     Indication: Cough
  28. IBUPROFEN [Concomitant]
     Active Substance: IBUPROFEN
     Indication: Arthralgia
     Route: 048
     Dates: start: 20230427, end: 20230506
  29. NAPROXEN [Concomitant]
     Active Substance: NAPROXEN
     Indication: Myalgia
     Route: 048
     Dates: start: 20230519
  30. CEFTRIAXONE [Concomitant]
     Active Substance: CEFTRIAXONE\CEFTRIAXONE SODIUM
     Indication: Prostatitis
     Route: 042
     Dates: start: 20230729, end: 20230801
  31. GENTAMICIN [Concomitant]
     Active Substance: GENTAMICIN
     Indication: Prostatitis
     Route: 042
     Dates: start: 20230729, end: 20230801
  32. DEXKETOPROFEN [Concomitant]
     Active Substance: DEXKETOPROFEN
     Indication: Prostatitis
     Route: 042
     Dates: start: 20230729, end: 20230731
  33. ENOXAPARIN [Concomitant]
     Active Substance: ENOXAPARIN
     Indication: Prophylaxis
     Route: 058
     Dates: start: 20230729, end: 20230729
  34. INSULIN NOS [Concomitant]
     Active Substance: INSULIN NOS
     Indication: Diabetes mellitus
     Route: 058
     Dates: start: 20230729, end: 20230801
  35. LORAZEPAM [Concomitant]
     Active Substance: LORAZEPAM
     Indication: Prostatitis
     Route: 060
     Dates: start: 20230729, end: 20230801
  36. LORAZEPAM [Concomitant]
     Active Substance: LORAZEPAM
     Indication: Insomnia
     Route: 048
     Dates: start: 20230914
  37. METOCLOPRAMIDE [Concomitant]
     Active Substance: METOCLOPRAMIDE
     Indication: Prostatitis
     Route: 042
     Dates: start: 20230729, end: 20230801
  38. PANTOPRAZOLE [Concomitant]
     Active Substance: PANTOPRAZOLE
     Indication: Prostatitis
     Route: 042
     Dates: start: 20230729, end: 20230801
  39. TIAPRIDE [Concomitant]
     Active Substance: TIAPRIDE
     Indication: Prostatitis
     Route: 042
     Dates: start: 20230729, end: 20230801
  40. CEFIXIME [Concomitant]
     Active Substance: CEFIXIME
     Indication: Prostatitis
     Route: 048
     Dates: start: 20230801, end: 20230811
  41. CEFIXIME [Concomitant]
     Active Substance: CEFIXIME
     Indication: Prostatitis
     Route: 048
     Dates: start: 20230918
  42. POTASSIUM CHLORIDE [Concomitant]
     Active Substance: POTASSIUM CHLORIDE
     Indication: Hypokalaemia
     Route: 048
     Dates: start: 20230803
  43. AMOXICILLIN\CLAVULANATE POTASSIUM [Concomitant]
     Active Substance: AMOXICILLIN\CLAVULANATE POTASSIUM
     Indication: Urinary tract infection
     Route: 048
     Dates: start: 20230914, end: 20230920
  44. TAMSULOSIN [Concomitant]
     Active Substance: TAMSULOSIN
     Indication: Prostatitis
     Route: 048
     Dates: start: 20230918
  45. ASCORBIC ACID\POTASSIUM BICARBONATE [Concomitant]
     Active Substance: ASCORBIC ACID\POTASSIUM BICARBONATE
     Indication: Hypokalaemia
     Route: 048
     Dates: start: 20230918, end: 20230919
  46. CEFDITOREN [Concomitant]
     Active Substance: CEFDITOREN
     Indication: Pyrexia
     Route: 048
     Dates: start: 20231031
  47. LACTULOSE [Concomitant]
     Active Substance: LACTULOSE
     Indication: Prophylaxis
     Route: 048
     Dates: start: 20231031
  48. SPIRONOLACTONE [Concomitant]
     Active Substance: SPIRONOLACTONE
     Indication: Hypertension
     Route: 048
     Dates: start: 20231031

REACTIONS (1)
  - Discomfort [Not Recovered/Not Resolved]

NARRATIVE: CASE EVENT DATE: 20231107
